FAERS Safety Report 19996569 (Version 1)
Quarter: 2021Q4

REPORT INFORMATION
  Report Type: Spontaneous
  Country: US (occurrence: US)
  Receive Date: 20211026
  Receipt Date: 20211026
  Transmission Date: 20220303
  Serious: Yes (Hospitalization, Other)
  Sender: FDA-Public Use
  Company Number: US-UPSHER-SMITH LABORATORIES, LLC-2021USL00730

PATIENT
  Sex: Male
  Weight: 56.69 kg

DRUGS (10)
  1. WARFARIN SODIUM [Suspect]
     Active Substance: WARFARIN SODIUM
     Indication: Deep vein thrombosis
     Dosage: 9 UNK, EVERY 48 HOURS
     Dates: start: 2009
  2. WARFARIN SODIUM [Suspect]
     Active Substance: WARFARIN SODIUM
     Indication: Pulmonary embolism
     Dosage: 10 UNK, EVERY 48 HOURS
     Dates: start: 2009
  3. WARFARIN SODIUM [Suspect]
     Active Substance: WARFARIN SODIUM
     Indication: Blood disorder
  4. WARFARIN SODIUM [Suspect]
     Active Substance: WARFARIN SODIUM
     Indication: Arterial thrombosis
  5. LISINOPRIL [Concomitant]
     Active Substance: LISINOPRIL
  6. UNSPECIFIED ^BLOOD PRESSURE PILLS^ [Concomitant]
  7. UNSPECIFIED ^NEBULIZER^ [Concomitant]
  8. VITAMIN D [Concomitant]
     Active Substance: VITAMIN D NOS
  9. SPIRIVA [Concomitant]
     Active Substance: TIOTROPIUM BROMIDE MONOHYDRATE
  10. UNSPECIFIED ^12 DIFFERENT MEDICATIONS^ [Concomitant]

REACTIONS (9)
  - Spinal disorder [Unknown]
  - Spinal stenosis [Unknown]
  - Respiration abnormal [Recovered/Resolved]
  - Haemorrhagic disorder [Unknown]
  - Wound [Unknown]
  - Fall [Unknown]
  - Body height decreased [Not Recovered/Not Resolved]
  - Weight decreased [Not Recovered/Not Resolved]
  - Unevaluable event [Unknown]
